FAERS Safety Report 15814448 (Version 1)
Quarter: 2019Q1

REPORT INFORMATION
  Report Type: Spontaneous
  Country: BE (occurrence: BE)
  Receive Date: 20190111
  Receipt Date: 20190111
  Transmission Date: 20190417
  Serious: Yes (Hospitalization, Congenital Anomaly)
  Sender: FDA-Public Use
  Company Number: BE-MYLANLABS-2019M1001136

PATIENT
  Sex: Female
  Weight: 2.57 kg

DRUGS (4)
  1. ISONIAZID. [Suspect]
     Active Substance: ISONIAZID
     Indication: LATENT TUBERCULOSIS
     Dosage: MOTHER RECEIVED ISONIAZID AFTER DELIVERY
     Route: 063
  2. PYRIDOXINE [Suspect]
     Active Substance: PYRIDOXINE
     Indication: LATENT TUBERCULOSIS
     Dosage: MOTHER RECEIVED ISONIAZID AFTER DELIVERY
     Route: 063
  3. METHYLPREDNISOLONE. [Suspect]
     Active Substance: METHYLPREDNISOLONE
     Indication: CROHN^S DISEASE
     Dosage: MOTHER HAD RECEIVED METHYLPREDNISOLONE IN A GRADUALLY REDUCING DOSE WITH A MAXIMUM OF 32 MG DAILY...
     Route: 064
  4. ADALIMUMAB [Suspect]
     Active Substance: ADALIMUMAB
     Indication: CROHN^S DISEASE
     Dosage: MOTHER RECEIVED ADALIMUMAB 40MG EVERY 2 WEEKS FOR UP TO 3 MONTHS BEFORE DELIVERY
     Route: 064

REACTIONS (5)
  - Foetal exposure during pregnancy [Recovered/Resolved]
  - Omphalitis [Recovered/Resolved]
  - Staphylococcal infection [Recovered/Resolved]
  - Exposure via breast milk [Recovered/Resolved]
  - Infantile genetic agranulocytosis [Recovered/Resolved]
